FAERS Safety Report 6748403-4 (Version None)
Quarter: 2010Q2

REPORT INFORMATION
  Report Type: 
  Country: None (occurrence: None)
  Receive Date: 20100527
  Receipt Date: 20100527
  Transmission Date: 20101027
  Serious: Yes (Disabling)
  Sender: FDA-Public Use
  Company Number: None

PATIENT
  Sex: Male
  Weight: 92.0802 kg

DRUGS (3)
  1. HYDROCHLOROTHIAZIDE [Suspect]
     Indication: BLOOD PRESSURE INCREASED
     Dosage: 25MG 1 A DAY MOUTH
     Route: 048
     Dates: start: 20091102, end: 20100425
  2. DILTIAZEM [Concomitant]
  3. LISINOPRIL [Concomitant]

REACTIONS (1)
  - JOINT SWELLING [None]
